FAERS Safety Report 6646573-X (Version None)
Quarter: 2010Q1

REPORT INFORMATION
  Report Type: 
  Country: None (occurrence: None)
  Receive Date: 20100323
  Receipt Date: 20100317
  Transmission Date: 20100710
  Serious: Yes (Life-Threatening, Hospitalization, Other)
  Sender: FDA-Public Use
  Company Number: BR-ELI_LILLY_AND_COMPANY-BR201002000384

PATIENT
  Sex: Female
  Weight: 75 kg

DRUGS (9)
  1. BYETTA [Suspect]
     Indication: TYPE 2 DIABETES MELLITUS
     Dosage: 10 UG, DAILY (1/D)
     Route: 058
  2. BYETTA [Suspect]
     Dosage: 5 UG, UNKNOWN
     Route: 058
     Dates: end: 20100108
  3. PURAN T4 [Concomitant]
     Indication: THYROID DISORDER
     Dosage: 88 UG, UNKNOWN
     Route: 065
  4. ACTOS [Concomitant]
     Indication: TYPE 2 DIABETES MELLITUS
     Dosage: 45 MG, DAILY (1/D)
     Route: 065
  5. PONDERA [Concomitant]
     Indication: DEPRESSION
     Dosage: 20 MG, DAILY (1/D)
     Route: 065
  6. METFORMIN HYDROCHLORIDE [Concomitant]
     Indication: DIABETES MELLITUS
     Dosage: 850 MG, 3/D
     Route: 065
  7. OMEPRAZOLE [Concomitant]
     Indication: GASTRIC DISORDER
     Dosage: 25 MG, DAILY (1/D)
     Route: 065
  8. LIPITOR [Concomitant]
     Indication: BLOOD CHOLESTEROL
     Dosage: 10 MG, UNKNOWN
     Route: 065
  9. OSCAL D [Concomitant]
     Indication: BONE DISORDER
     Dosage: 500 MG, UNKNOWN
     Route: 065

REACTIONS (7)
  - ABDOMINAL PAIN [None]
  - DIABETIC HYPERGLYCAEMIC COMA [None]
  - HEADACHE [None]
  - HYPOGLYCAEMIA [None]
  - MALAISE [None]
  - NAUSEA [None]
  - SYNCOPE [None]
